FAERS Safety Report 9993044 (Version 1)
Quarter: 2014Q1

REPORT INFORMATION
  Report Type: Report from Study
  Country: US (occurrence: US)
  Receive Date: 20140310
  Receipt Date: 20140310
  Transmission Date: 20141002
  Serious: No
  Sender: FDA-Public Use
  Company Number: US-ABBVIE-13P-163-1117635-00

PATIENT
  Age: 40 Year
  Sex: Female
  Weight: 63.56 kg

DRUGS (8)
  1. LUPRON DEPOT [Suspect]
     Indication: UTERINE CYST
     Dates: start: 20130329, end: 20130329
  2. LUPRON DEPOT [Suspect]
     Indication: ABDOMINAL PAIN
  3. LUPRON DEPOT [Suspect]
     Indication: UTERINE CYST
     Dates: start: 20130627, end: 20130627
  4. LUPRON DEPOT [Suspect]
     Indication: ABDOMINAL PAIN
  5. NORETHINDRONE [Suspect]
     Indication: HOT FLUSH
     Dates: start: 20130627, end: 20130629
  6. TOPAMAX [Concomitant]
     Indication: ANXIETY
  7. FLUOXETINE [Concomitant]
     Indication: ANXIETY
  8. FISH OIL [Concomitant]
     Indication: SUPPLEMENTATION THERAPY

REACTIONS (3)
  - Hot flush [Not Recovered/Not Resolved]
  - Pain [Not Recovered/Not Resolved]
  - Drug ineffective [Not Recovered/Not Resolved]
